FAERS Safety Report 21587294 (Version 1)
Quarter: 2022Q4

REPORT INFORMATION
  Report Type: Other
  Country: US (occurrence: None)
  Receive Date: 20221114
  Receipt Date: 20221114
  Transmission Date: 20230113
  Serious: Yes (Other)
  Sender: FDA-Public Use
  Company Number: US-ROCHE-3074501

PATIENT
  Age: 77 Year
  Sex: Male

DRUGS (3)
  1. ERIVEDGE [Suspect]
     Active Substance: VISMODEGIB
     Indication: Tonsil cancer
     Dosage: TAKE 1 CAPSULE BY MOUTH BY MOUTH DAILY STORE IN ORIGINAL CONTAINER
     Route: 048
  2. ERIVEDGE [Suspect]
     Active Substance: VISMODEGIB
     Indication: Myasthenia gravis
  3. ERIVEDGE [Suspect]
     Active Substance: VISMODEGIB
     Indication: Neoplasm malignant

REACTIONS (10)
  - Off label use [Unknown]
  - Weight decreased [Unknown]
  - Fatigue [Unknown]
  - Muscle spasms [Unknown]
  - Ageusia [Unknown]
  - Decreased appetite [Unknown]
  - Alopecia [Unknown]
  - Nausea [Unknown]
  - Diarrhoea [Unknown]
  - Atrial fibrillation [Unknown]
